FAERS Safety Report 4784340-2 (Version None)
Quarter: 2005Q3

REPORT INFORMATION
  Report Type: 
  Country: None (occurrence: None)
  Receive Date: 20050930
  Receipt Date: 20050906
  Transmission Date: 20060218
  Serious: Yes (Other)
  Sender: FDA-Public Use
  Company Number: 200516904US

PATIENT
  Sex: Male
  Weight: 84 kg

DRUGS (11)
  1. LOVENOX [Suspect]
     Indication: THROMBOSIS
     Route: 051
     Dates: start: 20050608
  2. TEMODAR [Concomitant]
     Dosage: DOSE: UNKNOWN
     Dates: start: 20050301, end: 20050414
  3. RADIATION [Concomitant]
     Dosage: DOSE: UNKNOWN
     Dates: start: 20050301, end: 20050414
  4. KEPPRA [Concomitant]
     Dosage: DOSE: UNKNOWN
  5. ANTIDEPRESSANTS [Concomitant]
     Dosage: DOSE: UNKNOWN
  6. ASCORBIC ACID [Concomitant]
     Dosage: DOSE: UNKNOWN
  7. COENZYME Q10 [Concomitant]
     Dosage: DOSE: UNKNOWN
  8. MULTIVITAMINS, PLAIN [Concomitant]
     Dosage: DOSE: UNKNOWN
  9. GRAPESEED [Concomitant]
     Dosage: DOSE: UNKNOWN
  10. FLAXSEED OIL [Concomitant]
     Dosage: DOSE: UNKNOWN
  11. MAGNESIUM [Concomitant]
     Dosage: DOSE: UNKNOWN

REACTIONS (6)
  - ANGINA PECTORIS [None]
  - CARDIAC VALVE DISEASE [None]
  - HEART VALVE INSUFFICIENCY [None]
  - INCORRECT ROUTE OF DRUG ADMINISTRATION [None]
  - INJECTION SITE HAEMORRHAGE [None]
  - PAIN [None]
